FAERS Safety Report 21252865 (Version 6)
Quarter: 2022Q4

REPORT INFORMATION
  Report Type: Report from Study
  Country: US (occurrence: US)
  Receive Date: 20220825
  Receipt Date: 20221119
  Transmission Date: 20230113
  Serious: No
  Sender: FDA-Public Use
  Company Number: US-NOVARTISTESTPH-NVSC2022US189281

PATIENT
  Age: 13 Year
  Sex: Female

DRUGS (2)
  1. OMNITROPE [Suspect]
     Active Substance: SOMATROPIN
     Indication: Short stature
     Dosage: 0.20 ML, QD
     Route: 058
     Dates: start: 20220818
  2. OMNITROPE [Suspect]
     Active Substance: SOMATROPIN
     Dosage: 0.20 ML, QD
     Route: 058
     Dates: start: 20220825

REACTIONS (4)
  - Headache [Unknown]
  - Injection site haemorrhage [Recovered/Resolved]
  - Injection site bruising [Unknown]
  - Syringe issue [Unknown]

NARRATIVE: CASE EVENT DATE: 20220915
